FAERS Safety Report 24749886 (Version 1)
Quarter: 2024Q4

REPORT INFORMATION
  Report Type: Spontaneous
  Country: NZ (occurrence: NZ)
  Receive Date: 20241218
  Receipt Date: 20241218
  Transmission Date: 20250115
  Serious: Yes (Other)
  Sender: ALEXION PHARMACEUTICALS
  Company Number: NZ-ASTRAZENECA-202412OCE006841NZ

PATIENT
  Age: 53 Year

DRUGS (11)
  1. TAGRISSO [Suspect]
     Active Substance: OSIMERTINIB
  2. TAGRISSO [Suspect]
     Active Substance: OSIMERTINIB
     Route: 048
  3. TAGRISSO [Suspect]
     Active Substance: OSIMERTINIB
  4. TAGRISSO [Suspect]
     Active Substance: OSIMERTINIB
     Route: 048
  5. IRESSA [Suspect]
     Active Substance: GEFITINIB
  6. IRESSA [Suspect]
     Active Substance: GEFITINIB
     Route: 048
  7. IRESSA [Suspect]
     Active Substance: GEFITINIB
  8. IRESSA [Suspect]
     Active Substance: GEFITINIB
     Route: 048
  9. ENOXAPARIN SODIUM [Concomitant]
     Active Substance: ENOXAPARIN SODIUM
  10. TARCEVA [Concomitant]
     Active Substance: ERLOTINIB HYDROCHLORIDE
  11. OMEPRAZOLE [Concomitant]
     Active Substance: OMEPRAZOLE

REACTIONS (5)
  - Metastases to central nervous system [Unknown]
  - Conjunctivitis [Unknown]
  - Rash [Unknown]
  - Musculoskeletal stiffness [Unknown]
  - Arthralgia [Unknown]
